FAERS Safety Report 13781893 (Version 2)
Quarter: 2017Q3

REPORT INFORMATION
  Report Type: Spontaneous
  Country: FR (occurrence: FR)
  Receive Date: 20170724
  Receipt Date: 20170731
  Transmission Date: 20171127
  Serious: Yes (Hospitalization)
  Sender: FDA-Public Use
  Company Number: FR-TEVA-787839ISR

PATIENT
  Age: 8 Year

DRUGS (1)
  1. CARBAMAZEPINE. [Suspect]
     Active Substance: CARBAMAZEPINE
     Indication: PARTIAL SEIZURES
     Route: 065

REACTIONS (7)
  - Face oedema [Unknown]
  - Rash maculo-papular [Unknown]
  - Cheilitis [Unknown]
  - Drug reaction with eosinophilia and systemic symptoms [Unknown]
  - Agranulocytosis [Unknown]
  - Roseolovirus test positive [Unknown]
  - Oedema peripheral [Unknown]
